FAERS Safety Report 4666584-3 (Version None)
Quarter: 2005Q2

REPORT INFORMATION
  Report Type: 
  Country: None (occurrence: None)
  Receive Date: 20050518
  Receipt Date: 20050509
  Transmission Date: 20051028
  Serious: Yes (Hospitalization, Other)
  Sender: FDA-Public Use
  Company Number: HQWYE628710MAY05

PATIENT
  Age: 37 Year
  Sex: Male

DRUGS (1)
  1. MYLOTARG [Suspect]
     Indication: ACUTE MYELOID LEUKAEMIA
     Dosage: 19 MG 1X PER 1DAY, INTRAVENOUS
     Route: 042
     Dates: start: 20050428, end: 20050428

REACTIONS (1)
  - INFUSION RELATED REACTION [None]
